FAERS Safety Report 15775870 (Version 2)
Quarter: 2019Q1

REPORT INFORMATION
  Report Type: Report from Study
  Country: EG (occurrence: EG)
  Receive Date: 20181231
  Receipt Date: 20190128
  Transmission Date: 20190417
  Serious: Yes (Death, Hospitalization, Disabling, Other)
  Sender: FDA-Public Use
  Company Number: EG-ROCHE-2236379

PATIENT
  Sex: Female
  Weight: 70 kg

DRUGS (7)
  1. CORDARON [Concomitant]
     Active Substance: AMIODARONE HYDROCHLORIDE
     Route: 065
     Dates: start: 20181221
  2. MABTHERA [Suspect]
     Active Substance: RITUXIMAB
     Indication: LYMPHOCYTIC LEUKAEMIA
     Dosage: 1 VIAL
     Route: 042
     Dates: start: 20181113
  3. MABTHERA [Suspect]
     Active Substance: RITUXIMAB
     Indication: LYMPHOCYTIC LEUKAEMIA
     Dosage: 1 VIAL
     Route: 058
     Dates: start: 20181204
  4. CONTROLOC [Concomitant]
     Active Substance: PANTOPRAZOLE SODIUM
     Route: 065
     Dates: start: 20181215
  5. FEBURIC [Concomitant]
     Active Substance: FEBUXOSTAT
     Route: 065
     Dates: start: 20181215
  6. MABTHERA [Suspect]
     Active Substance: RITUXIMAB
     Route: 042
  7. SOLUPRED (EGYPT) [Concomitant]
     Active Substance: PREDNISOLONE
     Route: 065
     Dates: start: 20181215

REACTIONS (11)
  - Dysphagia [Unknown]
  - Hypotension [Unknown]
  - Oedema peripheral [Unknown]
  - Oedema [Not Recovered/Not Resolved]
  - Diarrhoea [Not Recovered/Not Resolved]
  - Cardiac arrest [Fatal]
  - Fatigue [Not Recovered/Not Resolved]
  - Psychological trauma [Unknown]
  - Nasopharyngitis [Not Recovered/Not Resolved]
  - Vomiting [Not Recovered/Not Resolved]
  - Weight increased [Unknown]

NARRATIVE: CASE EVENT DATE: 20181215
